FAERS Safety Report 13339898 (Version 1)
Quarter: 2017Q1

REPORT INFORMATION
  Report Type: Spontaneous
  Country: US (occurrence: US)
  Receive Date: 20170315
  Receipt Date: 20170315
  Transmission Date: 20170428
  Serious: Yes (Other)
  Sender: FDA-Public Use
  Company Number: US-BEH-2017078804

PATIENT
  Age: 72 Year
  Sex: Female
  Weight: 68.27 kg

DRUGS (40)
  1. ACETAMINOPHEN. [Concomitant]
     Active Substance: ACETAMINOPHEN
  2. BACTRIM DS [Concomitant]
     Active Substance: SULFAMETHOXAZOLE\TRIMETHOPRIM
  3. VITAMIN D                          /00107901/ [Concomitant]
     Active Substance: ERGOCALCIFEROL
  4. QVAR [Concomitant]
     Active Substance: BECLOMETHASONE DIPROPIONATE
  5. OXYGEN. [Concomitant]
     Active Substance: OXYGEN
  6. NEURONTIN [Concomitant]
     Active Substance: GABAPENTIN
  7. SEREVENT DISKUS [Concomitant]
     Active Substance: SALMETEROL XINAFOATE
  8. ATROVENT [Concomitant]
     Active Substance: IPRATROPIUM BROMIDE
  9. LIPITOR [Concomitant]
     Active Substance: ATORVASTATIN CALCIUM
  10. HIZENTRA [Suspect]
     Active Substance: HUMAN IMMUNOGLOBULIN G
     Dosage: UNK
     Route: 058
  11. DEXAMETHASONE. [Concomitant]
     Active Substance: DEXAMETHASONE
  12. AZASITE [Concomitant]
     Active Substance: AZITHROMYCIN MONOHYDRATE
  13. ATROVENT LS [Concomitant]
  14. VITAMIN C [Concomitant]
     Active Substance: ASCORBIC ACID
  15. VIVELLE-DOT [Concomitant]
     Active Substance: ESTRADIOL
  16. DIPHENHYDRAMINE. [Concomitant]
     Active Substance: DIPHENHYDRAMINE
  17. LIDOCAINE. [Concomitant]
     Active Substance: LIDOCAINE
  18. EPIPEN [Concomitant]
     Active Substance: EPINEPHRINE
  19. LOTEMAX [Concomitant]
     Active Substance: LOTEPREDNOL ETABONATE
  20. CENTRUM SILVER                     /02363801/ [Concomitant]
     Active Substance: MINERALS\VITAMINS
  21. ZINC GLUCONATE [Concomitant]
     Active Substance: ZINC GLUCONATE
  22. SINGULAIR [Concomitant]
     Active Substance: MONTELUKAST SODIUM
  23. CHLORDIAZEPOXIDE HCL AND CLIDINIUM BROMIDE [Concomitant]
     Active Substance: CHLORDIAZEPOXIDE HYDROCHLORIDE\CLIDINIUM BROMIDE
  24. VITAMIN B12 [Concomitant]
     Active Substance: CYANOCOBALAMIN
  25. NASOGEL SALINE [Concomitant]
  26. ALIGN [Concomitant]
     Active Substance: BIFIDOBACTERIUM LONGUM SUBSP. INFANTIS
  27. RHINOCORT                          /00212602/ [Concomitant]
  28. HIZENTRA [Suspect]
     Active Substance: HUMAN IMMUNOGLOBULIN G
     Indication: IMMUNODEFICIENCY COMMON VARIABLE
     Dosage: 12 G, UNK
     Route: 058
     Dates: start: 20100623
  29. CELEBREX [Concomitant]
     Active Substance: CELECOXIB
  30. MUCINEX EXPECTORANT [Concomitant]
  31. CIMETIDINE [Concomitant]
     Active Substance: CIMETIDINE
  32. RESTASIS [Concomitant]
     Active Substance: CYCLOSPORINE
  33. GLUCOSAMINE + CHONDROITIN          /01430901/ [Concomitant]
  34. LIDOCAINE/PRILOCAINE [Concomitant]
     Active Substance: LIDOCAINE\PRILOCAINE
  35. VAGIFEM [Concomitant]
     Active Substance: ESTRADIOL
  36. PLAQUENIL                          /00072602/ [Concomitant]
     Active Substance: HYDROXYCHLOROQUINE DIPHOSPHATE
  37. SYNTHROID [Concomitant]
     Active Substance: LEVOTHYROXINE SODIUM
  38. ACIPHEX [Concomitant]
     Active Substance: RABEPRAZOLE SODIUM
  39. GENTEAL                            /00445101/ [Concomitant]
     Active Substance: HYPROMELLOSE 2910 (4000 MPA.S)
  40. GARLIC                             /01570501/ [Concomitant]
     Active Substance: GARLIC

REACTIONS (2)
  - Skin cancer [Unknown]
  - Skin neoplasm excision [Unknown]

NARRATIVE: CASE EVENT DATE: 201701
